FAERS Safety Report 8235172-4 (Version None)
Quarter: 2012Q1

REPORT INFORMATION
  Report Type: 
  Country: None (occurrence: None)
  Receive Date: 20120326
  Receipt Date: 20120301
  Transmission Date: 20120608
  Serious: Yes (Hospitalization, Other)
  Sender: FDA-Public Use
  Company Number: NO-ROCHE-800880

PATIENT
  Sex: Male
  Weight: 78 kg

DRUGS (10)
  1. WARFARIN SODIUM [Suspect]
     Indication: ANTICOAGULANT THERAPY
     Route: 048
     Dates: start: 20080411, end: 20110601
  2. ANAGRELIDE HCL [Suspect]
     Indication: ESSENTIAL THROMBOCYTHAEMIA
     Route: 048
     Dates: start: 20081015
  3. ROFERON-A [Suspect]
     Route: 058
  4. ASPIRIN [Suspect]
     Indication: ESSENTIAL THROMBOCYTHAEMIA
     Route: 048
     Dates: start: 20050203
  5. ROFERON-A [Suspect]
     Indication: ESSENTIAL THROMBOCYTHAEMIA
     Route: 058
     Dates: start: 20050228, end: 20060807
  6. ROFERON-A [Suspect]
     Route: 058
  7. ROFERON-A [Suspect]
     Route: 058
  8. ANAGRELIDE HCL [Suspect]
     Dates: start: 20061120
  9. IRBESARTAN [Concomitant]
     Indication: HYPERTENSION
  10. HYDROXYUREA [Suspect]
     Indication: ESSENTIAL THROMBOCYTHAEMIA
     Route: 048
     Dates: start: 20060829

REACTIONS (2)
  - MUSCLE HAEMORRHAGE [None]
  - DRUG INTOLERANCE [None]
